FAERS Safety Report 6437919-6 (Version None)
Quarter: 2009Q4

REPORT INFORMATION
  Report Type: 
  Country: None (occurrence: None)
  Receive Date: 20091112
  Receipt Date: 20091103
  Transmission Date: 20100525
  Serious: Yes (Hospitalization, Other)
  Sender: FDA-Public Use
  Company Number: US-PFIZER INC-2009292822

PATIENT
  Sex: Female

DRUGS (2)
  1. VFEND [Suspect]
     Indication: LUNG INFECTION
     Dosage: 200 MG, 1X/DAY
     Route: 048
     Dates: start: 20091010
  2. MORPHINE [Concomitant]
     Indication: PAIN

REACTIONS (4)
  - HALLUCINATION [None]
  - LUNG INFECTION [None]
  - LYMPHOCYTE COUNT ABNORMAL [None]
  - VISUAL IMPAIRMENT [None]
